FAERS Safety Report 26159449 (Version 1)
Quarter: 2025Q4

REPORT INFORMATION
  Report Type: Spontaneous
  Country: GB (occurrence: GB)
  Receive Date: 20251216
  Receipt Date: 20251216
  Transmission Date: 20260118
  Serious: Yes (Other)
  Sender: ROCHE
  Company Number: None

PATIENT

DRUGS (1)
  1. TOCILIZUMAB [Suspect]
     Active Substance: TOCILIZUMAB
     Indication: Product used for unknown indication
     Dosage: EXPIRY DATE (FROM LABEL) - 2/28
     Route: 058

REACTIONS (9)
  - Feeling abnormal [Unknown]
  - Blister [Unknown]
  - Peripheral swelling [Unknown]
  - Swelling face [Unknown]
  - Drug ineffective [Unknown]
  - Cellulitis [Unknown]
  - Localised infection [Unknown]
  - Tremor [Unknown]
  - Pruritus [Unknown]

NARRATIVE: CASE EVENT DATE: 20251121
